APPROVED DRUG PRODUCT: MYRBETRIQ GRANULES
Active Ingredient: MIRABEGRON
Strength: 8MG/ML
Dosage Form/Route: FOR SUSPENSION, EXTENDED RELEASE;ORAL
Application: N213801 | Product #001 | TE Code: AB
Applicant: ASTELLAS PHARMA GLOBAL DEVELOPMENT INC
Approved: Mar 25, 2021 | RLD: Yes | RS: Yes | Type: RX

PATENTS:
Patent 10058536 | Expires: Mar 31, 2036
Patent 10058536*PED | Expires: Sep 30, 2036